FAERS Safety Report 20328204 (Version 3)
Quarter: 2022Q2

REPORT INFORMATION
  Report Type: Report from Study
  Country: JP (occurrence: JP)
  Receive Date: 20220112
  Receipt Date: 20220407
  Transmission Date: 20220720
  Serious: Yes (Hospitalization)
  Sender: FDA-Public Use
  Company Number: JP-PFIZER INC-2019023693

PATIENT
  Age: 66 Year
  Sex: Female
  Weight: 41 kg

DRUGS (13)
  1. LORLATINIB [Suspect]
     Active Substance: LORLATINIB
     Indication: Non-small cell lung cancer
     Dosage: 100 MG, 1X/DAY
     Route: 048
     Dates: start: 20190108, end: 20190116
  2. LORLATINIB [Suspect]
     Active Substance: LORLATINIB
     Dosage: 50 MG, 1X/DAY
     Route: 048
     Dates: start: 20190123, end: 20190315
  3. SYMPROIC [Concomitant]
     Active Substance: NALDEMEDINE
     Dosage: 0.2 MG, 1X/DAY
     Route: 048
  4. PANVITAN [ASCORBIC ACID;CALCIUM PANTOTHENATE;CYANOCOBALAMIN;ERGOCALCIF [Concomitant]
     Dosage: 1 G, 1X/DAY
     Route: 048
  5. DEXTROMETHORPHAN HYDROBROMIDE [Concomitant]
     Active Substance: DEXTROMETHORPHAN HYDROBROMIDE
     Indication: Cough
     Dosage: 30 MG, 4X/DAY
     Route: 048
     Dates: start: 20220322
  6. MAGNESIUM OXIDE [Concomitant]
     Active Substance: MAGNESIUM OXIDE
     Dosage: 0.33 G, 3X/DAY
     Route: 048
  7. CALCIUM CARBONATE\CHOLECALCIFEROL\MAGNESIUM CARBONATE [Concomitant]
     Active Substance: CALCIUM CARBONATE\CHOLECALCIFEROL\MAGNESIUM CARBONATE
     Dosage: 2 DF, 1X/DAY
     Route: 048
  8. LOXOPROFEN SODIUM [Concomitant]
     Active Substance: LOXOPROFEN SODIUM
     Indication: Analgesic therapy
     Dosage: 60 MG, 3X/DAY
     Route: 048
     Dates: start: 20181210
  9. RABEPRAZOLE SODIUM [Concomitant]
     Active Substance: RABEPRAZOLE SODIUM
     Indication: Gastritis
     Dosage: 10 MG, 1X/DAY
     Route: 048
     Dates: start: 20181210
  10. LYRICA [Concomitant]
     Active Substance: PREGABALIN
     Indication: Analgesic therapy
     Dosage: 75 MG, 1X/DAY
     Route: 048
     Dates: start: 20181221
  11. LYRICA [Concomitant]
     Active Substance: PREGABALIN
     Dosage: 25 MG, 1X/DAY
     Route: 048
  12. TAPENTADOL HYDROCHLORIDE [Concomitant]
     Active Substance: TAPENTADOL HYDROCHLORIDE
     Dosage: 150 MG, 2X/DAY
     Route: 048
     Dates: end: 20190108
  13. TAPENTADOL HYDROCHLORIDE [Concomitant]
     Active Substance: TAPENTADOL HYDROCHLORIDE
     Dosage: 200 MG, 2X/DAY
     Route: 048
     Dates: start: 20190108

REACTIONS (5)
  - Hallucination, visual [Recovered/Resolved]
  - Hypertriglyceridaemia [Not Recovered/Not Resolved]
  - Hypercholesterolaemia [Recovering/Resolving]
  - Insomnia [Recovered/Resolved]
  - Visual impairment [Recovered/Resolved]

NARRATIVE: CASE EVENT DATE: 20190117
